FAERS Safety Report 5496228-2 (Version None)
Quarter: 2007Q4

REPORT INFORMATION
  Report Type: 
  Country: None (occurrence: None)
  Receive Date: 20071025
  Receipt Date: 20070314
  Transmission Date: 20080405
  Serious: Yes (Other)
  Sender: FDA-Public Use
  Company Number: A0643211A

PATIENT
  Age: 79 Year
  Sex: Male

DRUGS (7)
  1. ADVAIR DISKUS 100/50 [Suspect]
     Indication: ASTHMA
     Dosage: 1PUFF TWICE PER DAY
     Route: 055
     Dates: start: 20070101
  2. CHEMOTHERAPY [Concomitant]
  3. AVELOX [Concomitant]
  4. PROTONIX [Concomitant]
  5. SINGULAIR [Concomitant]
  6. FLOMAX [Concomitant]
  7. AVODART [Concomitant]

REACTIONS (2)
  - COUGH [None]
  - PNEUMONIA [None]
